FAERS Safety Report 8214226-2 (Version None)
Quarter: 2012Q1

REPORT INFORMATION
  Report Type: 
  Country: None (occurrence: None)
  Receive Date: 20120316
  Receipt Date: 20120305
  Transmission Date: 20120608
  Serious: Yes (Other)
  Sender: FDA-Public Use
  Company Number: CA-JNJFOC-20120302793

PATIENT
  Sex: Male
  Weight: 75.4 kg

DRUGS (2)
  1. REMICADE [Suspect]
     Indication: COLITIS ULCERATIVE
     Route: 042
     Dates: start: 20110215
  2. MESALAMINE [Concomitant]
     Route: 048
     Dates: start: 20100101

REACTIONS (3)
  - MIGRAINE [None]
  - COUGH [None]
  - WHEEZING [None]
